FAERS Safety Report 7402672-6 (Version None)
Quarter: 2011Q2

REPORT INFORMATION
  Report Type: 
  Country: None (occurrence: None)
  Receive Date: 20110408
  Receipt Date: 20110315
  Transmission Date: 20111010
  Serious: No
  Sender: FDA-Public Use
  Company Number: US-B.I. PHARMACEUTICALS,INC./RIDGEFIELD-2010-BP-14580BP

PATIENT
  Sex: Female

DRUGS (14)
  1. CALCIUM [Concomitant]
  2. ASPIRIN [Concomitant]
     Indication: PROPHYLAXIS
  3. PRADAXA [Suspect]
     Indication: ANTICOAGULANT THERAPY
  4. BONIVA [Concomitant]
  5. PRADAXA [Suspect]
     Indication: ATRIAL FIBRILLATION
     Dosage: 300 MG
     Route: 048
     Dates: start: 20101101
  6. LASIX [Concomitant]
  7. NEXIUM [Concomitant]
  8. KLOR-CON [Concomitant]
  9. BYSTOLIC [Concomitant]
  10. ALDACTONE [Concomitant]
  11. LIPITOR [Concomitant]
     Indication: BLOOD CHOLESTEROL INCREASED
  12. VITAMINS [Concomitant]
     Indication: PROPHYLAXIS
  13. AMIODARONE HCL [Concomitant]
     Indication: ATRIAL FIBRILLATION
  14. ASCORBIC ACID [Concomitant]

REACTIONS (5)
  - VOMITING [None]
  - RETCHING [None]
  - ABDOMINAL PAIN [None]
  - DECREASED APPETITE [None]
  - ABDOMINAL DISCOMFORT [None]
